FAERS Safety Report 26187644 (Version 1)
Quarter: 2025Q4

REPORT INFORMATION
  Report Type: Spontaneous
  Country: AU (occurrence: AU)
  Receive Date: 20251222
  Receipt Date: 20251222
  Transmission Date: 20260118
  Serious: Yes (Other)
  Sender: CIPLA
  Company Number: AU-CIPLA (EU) LIMITED-2025AU16044

PATIENT

DRUGS (2)
  1. AZACITIDINE [Suspect]
     Active Substance: AZACITIDINE
     Indication: Acute myeloid leukaemia
     Dosage: UNK
     Route: 048
  2. VENETOCLAX [Suspect]
     Active Substance: VENETOCLAX
     Indication: Acute myeloid leukaemia
     Dosage: UNK
     Route: 065

REACTIONS (2)
  - Acute myeloid leukaemia recurrent [Unknown]
  - Off label use [Unknown]

NARRATIVE: CASE EVENT DATE: 20250101
